FAERS Safety Report 24154353 (Version 1)
Quarter: 2024Q3

REPORT INFORMATION
  Report Type: Spontaneous
  Country: US (occurrence: US)
  Receive Date: 20240730
  Receipt Date: 20240730
  Transmission Date: 20241016
  Serious: Yes (Other)
  Sender: BRISTOL MYERS SQUIBB
  Company Number: US-BRISTOL-MYERS SQUIBB COMPANY-2024-119715

PATIENT
  Age: 88 Year
  Sex: Female
  Weight: 56.7 kg

DRUGS (7)
  1. POMALIDOMIDE [Suspect]
     Active Substance: POMALIDOMIDE
     Indication: Plasma cell myeloma
     Dosage: FREQUENCY: 21 DAYS OUT OF 28
     Route: 048
     Dates: start: 20170509, end: 20190418
  2. POMALIDOMIDE [Suspect]
     Active Substance: POMALIDOMIDE
     Dosage: FREQUENCY: 21 DAYS OUT OF 28
     Route: 048
     Dates: start: 20190419, end: 20200713
  3. POMALIDOMIDE [Suspect]
     Active Substance: POMALIDOMIDE
     Dosage: FREQUENCY: 21 DAYS OUT OF 28
     Route: 048
     Dates: start: 20200714, end: 20201229
  4. POMALIDOMIDE [Suspect]
     Active Substance: POMALIDOMIDE
     Dosage: FREQUENCY: D 1-21
     Route: 048
     Dates: start: 20201230, end: 20210222
  5. POMALIDOMIDE [Suspect]
     Active Substance: POMALIDOMIDE
     Dosage: FREQUENCY: D 1-21
     Route: 048
     Dates: start: 20210223, end: 20210601
  6. DECADRON [Concomitant]
     Active Substance: DEXAMETHASONE
     Dosage: LOW DOSE FREQUENCY: DAYS 1,8,15,22 OUT OF 28 DAY CYCLE
     Route: 048
     Dates: start: 20170509, end: 20201229
  7. DARZALEX FASPRO [Concomitant]
     Active Substance: DARATUMUMAB\HYALURONIDASE-FIHJ
     Indication: Product used for unknown indication
     Dosage: FREQUENCY: Q 2 WEEKS
     Route: 058
     Dates: start: 20201230, end: 20210519

REACTIONS (2)
  - Toxicity to various agents [Unknown]
  - Plasma cell myeloma [Unknown]
